FAERS Safety Report 19758691 (Version 1)
Quarter: 2021Q3

REPORT INFORMATION
  Report Type: Spontaneous
  Country: FR (occurrence: FR)
  Receive Date: 20210827
  Receipt Date: 20210827
  Transmission Date: 20211014
  Serious: Yes (Hospitalization)
  Sender: FDA-Public Use
  Company Number: FR-PFIZER INC-202101053243

PATIENT
  Sex: Female
  Weight: 1.16 kg

DRUGS (2)
  1. IFOSFAMIDE. [Suspect]
     Active Substance: IFOSFAMIDE
     Indication: SARCOMA
     Dosage: 2.5 MG/M2, CYCLIC (EVERY 2 WEEKS, 4 CURES)
     Route: 064
     Dates: start: 20200324, end: 20200604
  2. DOXORUBICIN HCL [Suspect]
     Active Substance: DOXORUBICIN HYDROCHLORIDE
     Indication: SARCOMA
     Dosage: 4 CURES
     Route: 064
     Dates: start: 20200323, end: 20200602

REACTIONS (3)
  - Growth retardation [Recovered/Resolved]
  - Anaemia neonatal [Recovered/Resolved]
  - Premature baby [Recovered/Resolved]

NARRATIVE: CASE EVENT DATE: 20200606
